FAERS Safety Report 14101343 (Version 1)
Quarter: 2017Q4

REPORT INFORMATION
  Report Type: Spontaneous
  Country: US (occurrence: US)
  Receive Date: 20171017
  Receipt Date: 20171017
  Transmission Date: 20180321
  Serious: Yes (Hospitalization, Other)
  Sender: FDA-Public Use
  Company Number: None

PATIENT
  Sex: Female
  Weight: 63 kg

DRUGS (5)
  1. VOTRIENT [Suspect]
     Active Substance: PAZOPANIB HYDROCHLORIDE
     Indication: RENAL CANCER
     Route: 048
     Dates: start: 20170925, end: 20170929
  2. DEXAMETHASONE. [Concomitant]
     Active Substance: DEXAMETHASONE
  3. LEVETIRACETAM. [Concomitant]
     Active Substance: LEVETIRACETAM
  4. PANTOPRAZOLE [Concomitant]
     Active Substance: PANTOPRAZOLE
  5. PROCHLORPERAZINE. [Concomitant]
     Active Substance: PROCHLORPERAZINE

REACTIONS (4)
  - Gait inability [None]
  - Functional gastrointestinal disorder [None]
  - Paralysis [None]
  - Musculoskeletal disorder [None]
